FAERS Safety Report 5132017-6 (Version None)
Quarter: 2006Q4

REPORT INFORMATION
  Report Type: 
  Country: None (occurrence: None)
  Receive Date: 20061017
  Receipt Date: 20061004
  Transmission Date: 20070319
  Serious: Yes (Other)
  Sender: FDA-Public Use
  Company Number: 2006121459

PATIENT
  Age: 38 Year
  Sex: Female

DRUGS (13)
  1. CLINDAMYCIN HYDROCHLORIDE [Suspect]
     Dosage: 900 MG (3 IN 1 D), ORAL
     Route: 048
  2. PREDNISONE TAB [Concomitant]
  3. METHOTREXATE [Concomitant]
  4. FLUOXETINE [Concomitant]
  5. VALACYCLOVIR (VALACICLOVIR HYDROCHLORIDE) [Concomitant]
  6. ALENDRONATE SODIUM [Concomitant]
  7. ATENOLOL [Concomitant]
  8. LOSARTAN POTASSIUM [Concomitant]
  9. HYDROXYCHLOROQUINE SULFATE [Concomitant]
  10. CLONIDINE [Concomitant]
  11. AMLODIPINE [Concomitant]
  12. FUROSEMIDE [Concomitant]
  13. INSULIN (INSULIN) [Concomitant]

REACTIONS (1)
  - ACUTE GENERALISED EXANTHEMATOUS PUSTULOSIS [None]
